FAERS Safety Report 23730798 (Version 1)
Quarter: 2024Q2

REPORT INFORMATION
  Report Type: Spontaneous
  Country: CN (occurrence: CN)
  Receive Date: 20240411
  Receipt Date: 20240411
  Transmission Date: 20240716
  Serious: Yes (Other)
  Sender: FDA-Public Use
  Company Number: CN-SHANGHAI JUNSHI BIOSCIENCES CO., LTD.-CN2024009649

PATIENT

DRUGS (3)
  1. TORIPALIMAB [Suspect]
     Active Substance: TORIPALIMAB
     Indication: Rectal cancer
     Dosage: 240 MG
     Route: 041
     Dates: start: 20240223, end: 20240223
  2. NEDAPLATIN [Suspect]
     Active Substance: NEDAPLATIN
     Indication: Rectal cancer
     Dosage: 70 MG?(D1-D2, QD)
     Route: 041
     Dates: start: 20240223, end: 20240224
  3. IRINOTECAN HYDROCHLORIDE [Suspect]
     Active Substance: IRINOTECAN HYDROCHLORIDE
     Indication: Rectal cancer
     Dosage: 110 MG
     Route: 041
     Dates: start: 20240223, end: 20240223

REACTIONS (2)
  - Myelosuppression [Recovering/Resolving]
  - Off label use [Unknown]

NARRATIVE: CASE EVENT DATE: 20240223
